FAERS Safety Report 7762139-2 (Version None)
Quarter: 2011Q3

REPORT INFORMATION
  Report Type: 
  Country: None (occurrence: None)
  Receive Date: 20110920
  Receipt Date: 20110117
  Transmission Date: 20111222
  Serious: Yes (Death)
  Sender: FDA-Public Use
  Company Number: US-ROCHE-754382

PATIENT
  Age: 22 Day
  Weight: 3.2 kg

DRUGS (1)
  1. OSELTAMIVIR [Suspect]
     Route: 065

REACTIONS (2)
  - PERITONEAL HAEMORRHAGE [None]
  - ABDOMINAL COMPARTMENT SYNDROME [None]
